FAERS Safety Report 15395589 (Version 3)
Quarter: 2019Q1

REPORT INFORMATION
  Report Type: Spontaneous
  Country: DE (occurrence: DE)
  Receive Date: 20180918
  Receipt Date: 20190102
  Transmission Date: 20190417
  Serious: Yes (Life-Threatening, Hospitalization)
  Sender: FDA-Public Use
  Company Number: DE-JNJFOC-20180904046

PATIENT
  Age: 75 Year
  Sex: Female
  Weight: 75 kg

DRUGS (12)
  1. DICLOFENAC RESINATE [Concomitant]
     Active Substance: DICLOFENAC
     Route: 065
     Dates: end: 20180825
  2. XARELTO [Suspect]
     Active Substance: RIVAROXABAN
     Indication: ATRIAL FIBRILLATION
     Route: 048
     Dates: start: 201801, end: 20180821
  3. XARELTO [Suspect]
     Active Substance: RIVAROXABAN
     Indication: CEREBROVASCULAR ACCIDENT PROPHYLAXIS
     Route: 048
     Dates: start: 201801, end: 20180821
  4. ISICOM [Concomitant]
     Active Substance: CARBIDOPA\LEVODOPA
     Indication: PARKINSON^S DISEASE
     Route: 065
  5. TORASEMID [Concomitant]
     Active Substance: TORSEMIDE
     Route: 065
  6. BISOPROLOL [Concomitant]
     Active Substance: BISOPROLOL
     Route: 065
     Dates: end: 20180825
  7. RESOLOR [Concomitant]
     Active Substance: PRUCALOPRIDE SUCCINATE
     Route: 065
     Dates: end: 20180825
  8. LYRICA [Concomitant]
     Active Substance: PREGABALIN
     Indication: PARKINSON^S DISEASE
     Route: 065
     Dates: end: 20180825
  9. CLOZAPINE. [Concomitant]
     Active Substance: CLOZAPINE
     Route: 065
     Dates: end: 20180825
  10. ISICOM [Concomitant]
     Active Substance: CARBIDOPA\LEVODOPA
     Indication: PARKINSON^S DISEASE
     Route: 065
  11. PRAMIPEXOLE. [Concomitant]
     Active Substance: PRAMIPEXOLE
     Indication: PARKINSON^S DISEASE
     Route: 065
  12. PRAMIPEXOLE. [Concomitant]
     Active Substance: PRAMIPEXOLE
     Indication: PARKINSON^S DISEASE
     Route: 065

REACTIONS (6)
  - Hepatic cirrhosis [Recovering/Resolving]
  - Acute hepatic failure [Recovering/Resolving]
  - Asthenia [Unknown]
  - Ascites [Unknown]
  - Fatigue [Unknown]
  - Drug-induced liver injury [Recovering/Resolving]

NARRATIVE: CASE EVENT DATE: 20180820
